FAERS Safety Report 7525869-3 (Version None)
Quarter: 2011Q2

REPORT INFORMATION
  Report Type: 
  Country: None (occurrence: None)
  Receive Date: 20110606
  Receipt Date: 20110531
  Transmission Date: 20111010
  Serious: Yes (Other)
  Sender: FDA-Public Use
  Company Number: A0929705A

PATIENT
  Age: 69 Year
  Sex: Male

DRUGS (2)
  1. ADVAIR DISKUS 100/50 [Suspect]
     Dosage: 1PUFF TWICE PER DAY
     Route: 055
     Dates: start: 20110501
  2. COUMADIN [Concomitant]

REACTIONS (4)
  - CHEST DISCOMFORT [None]
  - MYOCARDIAL INFARCTION [None]
  - MUSCULOSKELETAL PAIN [None]
  - RESPIRATION ABNORMAL [None]
